FAERS Safety Report 6620481-2 (Version None)
Quarter: 2010Q1

REPORT INFORMATION
  Report Type: 
  Country: None (occurrence: None)
  Receive Date: 20100309
  Receipt Date: 20100226
  Transmission Date: 20100710
  Serious: Yes (Hospitalization)
  Sender: FDA-Public Use
  Company Number: HU-JNJFOC-20100209792

PATIENT
  Sex: Male

DRUGS (4)
  1. REMICADE [Suspect]
     Indication: ANKYLOSING SPONDYLITIS
     Route: 042
  2. REMICADE [Suspect]
     Route: 042
  3. REMICADE [Suspect]
     Route: 042
  4. REMICADE [Suspect]
     Route: 042

REACTIONS (17)
  - CYTOMEGALOVIRUS TEST POSITIVE [None]
  - DRUG INEFFECTIVE [None]
  - EPSTEIN-BARR VIRUS ANTIBODY POSITIVE [None]
  - FATIGUE [None]
  - FOLLICULITIS [None]
  - FOREIGN BODY [None]
  - LUNG NEOPLASM [None]
  - NIGHT SWEATS [None]
  - ODONTOGENIC CYST [None]
  - OROPHARYNGEAL PAIN [None]
  - PARVOVIRUS B19 TEST POSITIVE [None]
  - PERIODONTITIS [None]
  - PYREXIA [None]
  - SPINAL DISORDER [None]
  - TONGUE COATED [None]
  - TONGUE DISCOLOURATION [None]
  - TUBERCULOSIS TEST POSITIVE [None]
